FAERS Safety Report 5533279-3 (Version None)
Quarter: 2007Q4

REPORT INFORMATION
  Report Type: 
  Country: None (occurrence: None)
  Receive Date: 20071204
  Receipt Date: 20071204
  Transmission Date: 20080405
  Serious: Yes (Other)
  Sender: FDA-Public Use
  Company Number: D0055330A

PATIENT
  Age: 38 Year
  Sex: Female
  Weight: 58 kg

DRUGS (2)
  1. KIVEXA [Suspect]
     Indication: HIV INFECTION CDC CATEGORY B3
     Route: 048
     Dates: start: 20060517, end: 20070814
  2. REYATAZ [Suspect]
     Indication: HIV INFECTION CDC CATEGORY B3
     Route: 048
     Dates: start: 20040624, end: 20070814

REACTIONS (2)
  - HEPATITIS CHOLESTATIC [None]
  - HEPATITIS TOXIC [None]
